FAERS Safety Report 8909814 (Version 1)
Quarter: 2012Q4

REPORT INFORMATION
  Report Type: Report from Study
  Country: US (occurrence: US)
  Receive Date: 20121115
  Receipt Date: 20121115
  Transmission Date: 20130627
  Serious: Yes (Other)
  Sender: FDA-Public Use
  Company Number: US-JNJFOC-20121104357

PATIENT
  Sex: Male
  Weight: 117.94 kg

DRUGS (2)
  1. REMICADE [Suspect]
     Indication: CROHN^S DISEASE
     Route: 042
     Dates: start: 201112, end: 201209
  2. AZATHIOPRINE [Concomitant]
     Indication: CROHN^S DISEASE
     Route: 048
     Dates: start: 201201

REACTIONS (1)
  - Oesophageal carcinoma [Not Recovered/Not Resolved]
